FAERS Safety Report 9660988 (Version 1)
Quarter: 2013Q4

REPORT INFORMATION
  Report Type: Spontaneous
  Country: FR (occurrence: FR)
  Receive Date: 20131031
  Receipt Date: 20131031
  Transmission Date: 20140711
  Serious: Yes (Life-Threatening)
  Sender: FDA-Public Use
  Company Number: FR-B.I. PHARMACEUTICALS,INC./RIDGEFIELD-2013-FF-02616FF

PATIENT
  Age: 74 Year
  Sex: Female

DRUGS (1)
  1. PRADAXA [Suspect]
     Indication: ATRIAL FIBRILLATION
     Dosage: 220 MG
     Route: 048
     Dates: end: 20131005

REACTIONS (5)
  - Haemothorax [Not Recovered/Not Resolved]
  - Intra-abdominal haemorrhage [Not Recovered/Not Resolved]
  - Shock haemorrhagic [Not Recovered/Not Resolved]
  - Pericardial haemorrhage [Not Recovered/Not Resolved]
  - Cardiac tamponade [Not Recovered/Not Resolved]
